FAERS Safety Report 4281578-8 (Version None)
Quarter: 2004Q1

REPORT INFORMATION
  Report Type: 
  Country: None (occurrence: None)
  Receive Date: 20040108
  Receipt Date: 20031028
  Transmission Date: 20041129
  Serious: Yes (Other)
  Sender: FDA-Public Use
  Company Number: HQWYE646930OCT03

PATIENT
  Sex: Female

DRUGS (3)
  1. PREMPRO [Suspect]
     Dosage: ORAL
     Route: 048
     Dates: start: 20010705, end: 20010812
  2. OVCON-35 [Suspect]
     Dosage: ORAL
     Route: 048
     Dates: start: 20010705, end: 20010812
  3. PREMARIN [Suspect]
     Dosage: TOPICAL
     Route: 061
     Dates: start: 20010705, end: 20010812

REACTIONS (2)
  - DEEP VEIN THROMBOSIS [None]
  - PULMONARY EMBOLISM [None]
